FAERS Safety Report 6122306-0 (Version None)
Quarter: 2009Q1

REPORT INFORMATION
  Report Type: 
  Country: None (occurrence: None)
  Receive Date: 20090316
  Receipt Date: 20090316
  Transmission Date: 20090719
  Serious: Yes (Other)
  Sender: FDA-Public Use
  Company Number: None

PATIENT
  Age: 30 Year
  Sex: Female
  Weight: 54.4316 kg

DRUGS (2)
  1. NASONEX [Suspect]
     Indication: EAR CONGESTION
     Dosage: 2 SQUIRTS 1X PER DAY-3 DAYS NASAL
     Route: 045
     Dates: start: 20090216, end: 20090218
  2. NASONEX [Suspect]
     Indication: NASAL CONGESTION
     Dosage: 2 SQUIRTS 1X PER DAY-3 DAYS NASAL
     Route: 045
     Dates: start: 20090216, end: 20090218

REACTIONS (7)
  - ABDOMINAL PAIN UPPER [None]
  - DIZZINESS [None]
  - FEELING ABNORMAL [None]
  - MUSCLE SPASMS [None]
  - NERVOUSNESS [None]
  - SINUS HEADACHE [None]
  - TREMOR [None]
